FAERS Safety Report 5049307-8 (Version None)
Quarter: 2006Q4

REPORT INFORMATION
  Report Type: 
  Country: None (occurrence: None)
  Receive Date: 20060706
  Receipt Date: 20060623
  Transmission Date: 20070319
  Serious: No
  Sender: FDA-Public Use
  Company Number: 2006-144358-NL

PATIENT
  Sex: Female

DRUGS (1)
  1. NUVARING [Suspect]
     Dosage: DF

REACTIONS (3)
  - CONTRACEPTIVE DEVICE COMPLICATION [None]
  - IMPLANT SITE FIBROSIS [None]
  - INJURY [None]
